FAERS Safety Report 9455542 (Version 1)
Quarter: 2013Q3

REPORT INFORMATION
  Report Type: Spontaneous
  Country: US (occurrence: US)
  Receive Date: 20130813
  Receipt Date: 20130813
  Transmission Date: 20140515
  Serious: No
  Sender: FDA-Public Use
  Company Number: US-PFIZER INC-2013231804

PATIENT
  Sex: Female
  Weight: 63.49 kg

DRUGS (2)
  1. ADVIL PM [Suspect]
     Indication: SLEEP DISORDER
     Dosage: 200 MG AT NIGHT TIME AS NEEDED
     Route: 048
     Dates: start: 2012
  2. ADVIL PM [Suspect]
     Indication: SLEEP DISORDER
     Dosage: 200 MG AT NIGHT TIME AS NEEDED
     Route: 048
     Dates: start: 201308

REACTIONS (2)
  - Drug ineffective for unapproved indication [Unknown]
  - Insomnia [Unknown]
